FAERS Safety Report 5903811-6 (Version None)
Quarter: 2008Q3

REPORT INFORMATION
  Report Type: 
  Country: None (occurrence: None)
  Receive Date: 20080930
  Receipt Date: 20080916
  Transmission Date: 20090109
  Serious: Yes (Hospitalization)
  Sender: FDA-Public Use
  Company Number: CA-ELI_LILLY_AND_COMPANY-CA200809003911

PATIENT
  Age: 64 Year
  Sex: Female

DRUGS (11)
  1. FORTEO [Suspect]
     Indication: OSTEOPOROSIS
     Dosage: 20 UG, DAILY (1/D)
     Route: 058
     Dates: start: 20070614
  2. DARVON [Concomitant]
     Dosage: UNK, AS NEEDED
  3. VITAMIN D [Concomitant]
  4. CALCIUM [Concomitant]
  5. AMITRIPTYLINE HCL [Concomitant]
  6. OGEN [Concomitant]
  7. ALTACE [Concomitant]
  8. VITAMIN B-12 [Concomitant]
  9. LORAZEPAM [Concomitant]
  10. HYDROCHLOROTHIAZIDE [Concomitant]
  11. CELEBREX [Concomitant]

REACTIONS (2)
  - MOBILITY DECREASED [None]
  - MUSCULOSKELETAL DISCOMFORT [None]
